FAERS Safety Report 10073182 (Version 2)
Quarter: 2014Q2

REPORT INFORMATION
  Report Type: Report from Study
  Country: US (occurrence: US)
  Receive Date: 20140411
  Receipt Date: 20140424
  Transmission Date: 20141212
  Serious: No
  Sender: FDA-Public Use
  Company Number: US-ACTELION-A-NJ2014-97067

PATIENT
  Age: 68 Year
  Sex: Female

DRUGS (2)
  1. VELETRI [Suspect]
     Indication: PULMONARY ARTERIAL HYPERTENSION
     Dosage: 10 UNK, UNK
     Route: 042
     Dates: start: 20140315
  2. LETAIRIS [Concomitant]

REACTIONS (1)
  - Walking aid user [Unknown]
